FAERS Safety Report 4346095-5 (Version None)
Quarter: 2004Q2

REPORT INFORMATION
  Report Type: 
  Country: None (occurrence: None)
  Receive Date: 20040426
  Receipt Date: 20030919
  Transmission Date: 20050107
  Serious: Yes (Hospitalization, Other)
  Sender: FDA-Public Use
  Company Number: BR-BRISTOL-MYERS SQUIBB COMPANY-12388385

PATIENT
  Age: 61 Year
  Sex: Female

DRUGS (4)
  1. BLINDED: BMS188667 [Concomitant]
     Dosage: NUMBER OF COURSES: 2
     Route: 042
     Dates: start: 20030604
  2. METHOTREXATE [Suspect]
     Dates: start: 19930801, end: 20030910
  3. SULFASALAZINE [Concomitant]
     Dates: start: 20020501, end: 20030826
  4. LEFLUNOMIDE [Concomitant]
     Dates: start: 20030906

REACTIONS (3)
  - ANAEMIA [None]
  - PLEURAL EFFUSION [None]
  - RHEUMATOID ARTHRITIS [None]
